FAERS Safety Report 4744197-2 (Version None)
Quarter: 2005Q3

REPORT INFORMATION
  Report Type: 
  Country: None (occurrence: None)
  Receive Date: 20050809
  Receipt Date: 20050808
  Transmission Date: 20060218
  Serious: Yes (Death, Other)
  Sender: FDA-Public Use
  Company Number: 2005S1000077

PATIENT
  Age: 47 Year
  Sex: Female

DRUGS (5)
  1. CUBICIN [Suspect]
     Indication: ENTEROCOCCAL BACTERAEMIA
     Dosage: 8 MG/KG; Q24H; IV
     Route: 042
     Dates: start: 20050408, end: 20050422
  2. VANCOMYCIN [Concomitant]
  3. STREPTOMYCIN [Concomitant]
  4. SYNERCID [Concomitant]
  5. CEFEPIME [Concomitant]

REACTIONS (4)
  - CEREBRAL HAEMORRHAGE [None]
  - CREATININE RENAL CLEARANCE DECREASED [None]
  - DIALYSIS [None]
  - MENINGITIS ENTEROCOCCAL [None]
